FAERS Safety Report 15866584 (Version 1)
Quarter: 2019Q1

REPORT INFORMATION
  Report Type: Spontaneous
  Country: FR (occurrence: FR)
  Receive Date: 20190125
  Receipt Date: 20190125
  Transmission Date: 20190417
  Serious: Yes (Hospitalization)
  Sender: FDA-Public Use
  Company Number: FR-AUROBINDO-AUR-APL-2019-003599

PATIENT
  Age: 42 Year
  Sex: Male
  Weight: 80 kg

DRUGS (3)
  1. CEFOTAXIME [Suspect]
     Active Substance: CEFOTAXIME SODIUM
     Indication: INFECTION
     Dosage: UNK
     Route: 048
     Dates: start: 20181206, end: 20181208
  2. CEFTRIAXONE. [Suspect]
     Active Substance: CEFTRIAXONE
     Indication: INFECTION
     Dosage: UNK
     Route: 042
     Dates: start: 20181129, end: 20181130
  3. AMOXICILLIN. [Suspect]
     Active Substance: AMOXICILLIN
     Indication: INFECTION
     Dosage: UNK
     Route: 048
     Dates: start: 20181130, end: 20181206

REACTIONS (1)
  - Pyrexia [Recovered/Resolved]

NARRATIVE: CASE EVENT DATE: 201811
